FAERS Safety Report 6549173-5 (Version None)
Quarter: 2010Q1

REPORT INFORMATION
  Report Type: 
  Country: None (occurrence: None)
  Receive Date: 20100125
  Receipt Date: 20100119
  Transmission Date: 20100710
  Serious: Yes (Hospitalization)
  Sender: FDA-Public Use
  Company Number: US-ELI_LILLY_AND_COMPANY-US201001004011

PATIENT
  Sex: Female

DRUGS (4)
  1. ALIMTA [Suspect]
     Indication: URETHRAL CANCER
     Dosage: 835 MG, OTHER
     Route: 042
     Dates: start: 20091030, end: 20091030
  2. ALIMTA [Suspect]
     Dosage: 835 MG, OTHER
     Route: 042
     Dates: start: 20091123, end: 20091123
  3. ALIMTA [Suspect]
     Dosage: 800 MG, OTHER
     Route: 042
     Dates: start: 20091214, end: 20091214
  4. ALIMTA [Suspect]
     Dosage: 800 MG, UNK
     Dates: start: 20100104, end: 20100104

REACTIONS (2)
  - DIABETES INSIPIDUS [None]
  - OFF LABEL USE [None]
